FAERS Safety Report 8896273 (Version 1)
Quarter: 2012Q4

REPORT INFORMATION
  Report Type: Spontaneous
  Country: US (occurrence: None)
  Receive Date: 20121106
  Receipt Date: 20121106
  Transmission Date: 20130627
  Serious: No
  Sender: FDA-Public Use
  Company Number: None

PATIENT
  Age: 62 Year
  Sex: Female
  Weight: 95.26 kg

DRUGS (1)
  1. HYDROCHLOROTHIAZIDE [Suspect]
     Indication: BLOOD PRESSURE HIGH
     Dosage: 12.5  1 pd  po
     Route: 048
     Dates: start: 20121017, end: 20121031

REACTIONS (4)
  - Cough [None]
  - Increased upper airway secretion [None]
  - Blood pressure increased [None]
  - Anaphylactic reaction [None]
